FAERS Safety Report 11186582 (Version 1)
Quarter: 2015Q2

REPORT INFORMATION
  Report Type: Spontaneous
  Country: FR (occurrence: FR)
  Receive Date: 20150613
  Receipt Date: 20150613
  Transmission Date: 20150821
  Serious: Yes (Other)
  Sender: FDA-Public Use
  Company Number: PHHY2010FR61990

PATIENT
  Sex: Male

DRUGS (3)
  1. LYSANXIA [Suspect]
     Active Substance: PRAZEPAM
     Indication: PRODUCT USED FOR UNKNOWN INDICATION
     Dosage: UNK
     Route: 065
  2. LEPONEX [Suspect]
     Active Substance: CLOZAPINE
     Indication: SCHIZOPHRENIA
     Dosage: 3 TABLETS QD
     Route: 048
     Dates: end: 201505
  3. LEPONEX [Suspect]
     Active Substance: CLOZAPINE
     Dosage: TO 3 TO 4 TABLETS QD
     Route: 048
     Dates: start: 201505

REACTIONS (4)
  - Nightmare [Unknown]
  - Amnesia [Recovered/Resolved]
  - Disturbance in attention [Not Recovered/Not Resolved]
  - Weight increased [Not Recovered/Not Resolved]

NARRATIVE: CASE EVENT DATE: 2010
